FAERS Safety Report 23970043 (Version 2)
Quarter: 2024Q3

REPORT INFORMATION
  Report Type: Report from Study
  Country: US (occurrence: US)
  Receive Date: 20240613
  Receipt Date: 20240724
  Transmission Date: 20241017
  Serious: Yes (Hospitalization, Other)
  Sender: ABBVIE
  Company Number: US-ABBVIE-5797516

PATIENT
  Age: 72 Year
  Sex: Female

DRUGS (1)
  1. HUMIRA [Suspect]
     Active Substance: ADALIMUMAB
     Indication: Crohn^s disease
     Route: 058
     Dates: start: 201808

REACTIONS (7)
  - Head injury [Recovering/Resolving]
  - Skin laceration [Recovering/Resolving]
  - Nephrolithiasis [Unknown]
  - Headache [Recovered/Resolved]
  - Loss of consciousness [Recovering/Resolving]
  - Urinary tract infection [Unknown]
  - Electrolyte imbalance [Unknown]

NARRATIVE: CASE EVENT DATE: 20240601
